FAERS Safety Report 19737499 (Version 7)
Quarter: 2023Q1

REPORT INFORMATION
  Report Type: Report from Study
  Country: BR (occurrence: BR)
  Receive Date: 20210824
  Receipt Date: 20230127
  Transmission Date: 20230417
  Serious: Yes (Hospitalization, Other)
  Sender: FDA-Public Use
  Company Number: NVSC2021BR083907

PATIENT
  Sex: Female

DRUGS (5)
  1. KISQALI [Suspect]
     Active Substance: RIBOCICLIB
     Indication: Breast cancer
     Dosage: UNK (3 PILLS)
     Route: 065
     Dates: start: 20210312
  2. KISQALI [Suspect]
     Active Substance: RIBOCICLIB
     Indication: Metastases to bone
     Dosage: UNK
     Route: 065
     Dates: start: 20210316
  3. KISQALI [Suspect]
     Active Substance: RIBOCICLIB
     Dosage: UNK
     Route: 065
  4. KISQALI [Suspect]
     Active Substance: RIBOCICLIB
     Dosage: UNK,  (STOP DATE : 3 WEEKS AGO)
     Route: 065
  5. ANASTROZOLE [Suspect]
     Active Substance: ANASTROZOLE
     Indication: Product used for unknown indication
     Dosage: 1 TABLET PER DAY
     Route: 065

REACTIONS (25)
  - Thrombosis [Unknown]
  - Venous occlusion [Unknown]
  - Skin discolouration [Recovered/Resolved]
  - Peripheral swelling [Unknown]
  - Angiopathy [Unknown]
  - Pain in extremity [Unknown]
  - Haemorrhage [Recovered/Resolved]
  - Metastases to bone [Unknown]
  - Breast cancer [Unknown]
  - Malignant neoplasm progression [Unknown]
  - Somnolence [Not Recovered/Not Resolved]
  - Diarrhoea [Recovered/Resolved]
  - Pain [Not Recovered/Not Resolved]
  - Weight decreased [Unknown]
  - Tooth loss [Not Recovered/Not Resolved]
  - Emotional disorder [Unknown]
  - Yellow skin [Unknown]
  - Movement disorder [Unknown]
  - Product supply issue [Unknown]
  - Decreased appetite [Unknown]
  - Drug ineffective [Unknown]
  - Bone pain [Not Recovered/Not Resolved]
  - Blood pressure decreased [Unknown]
  - Dark circles under eyes [Recovering/Resolving]
  - Rash [Recovering/Resolving]

NARRATIVE: CASE EVENT DATE: 20210101
